FAERS Safety Report 6722699-7 (Version None)
Quarter: 2010Q2

REPORT INFORMATION
  Report Type: 
  Country: None (occurrence: None)
  Receive Date: 20100512
  Receipt Date: 20100503
  Transmission Date: 20101027
  Serious: Yes (Other)
  Sender: FDA-Public Use
  Company Number: AT-GENENTECH-301673

PATIENT

DRUGS (4)
  1. ACTIVASE [Suspect]
     Indication: RETINAL HAEMORRHAGE
     Route: 031
  2. ACTIVASE [Suspect]
     Indication: MACULAR DEGENERATION
  3. LUCENTIS [Suspect]
     Indication: RETINAL HAEMORRHAGE
     Route: 031
  4. LUCENTIS [Suspect]
     Indication: MACULAR DEGENERATION

REACTIONS (1)
  - RETINAL ARTERY OCCLUSION [None]
